FAERS Safety Report 9828512 (Version 2)
Quarter: 2014Q1

REPORT INFORMATION
  Report Type: Report from Study
  Country: US (occurrence: US)
  Receive Date: 20140117
  Receipt Date: 20140130
  Transmission Date: 20141002
  Serious: Yes (Hospitalization)
  Sender: FDA-Public Use
  Company Number: US-B.I. PHARMACEUTICALS,INC./RIDGEFIELD-2014-BI-01015BI

PATIENT
  Age: 73 Year
  Sex: Female

DRUGS (4)
  1. GILOTRIF [Suspect]
     Indication: NON-SMALL CELL LUNG CANCER
     Dosage: 30 MG
     Route: 048
     Dates: start: 20131208
  2. BENICAR [Concomitant]
     Dosage: 12.5 MG
  3. ARIMIDEX [Concomitant]
     Dosage: 1 MG
  4. LASIX [Concomitant]
     Dosage: 20 MG

REACTIONS (8)
  - Cerebrovascular accident [Not Recovered/Not Resolved]
  - Fall [Not Recovered/Not Resolved]
  - Cough [Not Recovered/Not Resolved]
  - Rhinorrhoea [Not Recovered/Not Resolved]
  - Dry skin [Not Recovered/Not Resolved]
  - Chapped lips [Not Recovered/Not Resolved]
  - Ill-defined disorder [Recovered/Resolved]
  - Epistaxis [Not Recovered/Not Resolved]
